FAERS Safety Report 7014682-1 (Version None)
Quarter: 2010Q3

REPORT INFORMATION
  Report Type: 
  Country: None (occurrence: None)
  Receive Date: 20100924
  Receipt Date: 20100924
  Transmission Date: 20110219
  Serious: Yes (Hospitalization)
  Sender: FDA-Public Use
  Company Number: None

PATIENT
  Age: 78 Year
  Sex: Male
  Weight: 101 kg

DRUGS (2)
  1. ENALAPRIL MALEATE [Suspect]
     Indication: HYPERTENSION
     Dosage: 20 MG EVERY DAY PO
     Route: 048
     Dates: start: 20060831, end: 20090611
  2. ENALAPRIL MALEATE [Suspect]
     Dosage: 20 MG BID PO
     Route: 048
     Dates: start: 20030519, end: 20060831

REACTIONS (3)
  - BLOOD GLUCOSE INCREASED [None]
  - HAEMATOCRIT DECREASED [None]
  - HYPERKALAEMIA [None]
